FAERS Safety Report 7245940-3 (Version None)
Quarter: 2011Q1

REPORT INFORMATION
  Report Type: 
  Country: None (occurrence: None)
  Receive Date: 20110126
  Receipt Date: 20110124
  Transmission Date: 20110831
  Serious: Yes (Death, Other)
  Sender: FDA-Public Use
  Company Number: US-AMGEN-USASP2010011930

PATIENT
  Age: 65 Year
  Sex: Female
  Weight: 57.143 kg

DRUGS (6)
  1. FAMOTIDINE [Concomitant]
     Indication: PRODUCT USED FOR UNKNOWN INDICATION
  2. NPLATE [Suspect]
     Indication: APLASTIC ANAEMIA
     Dates: start: 20100709, end: 20101104
  3. LEVOTHROID [Concomitant]
     Indication: PRODUCT USED FOR UNKNOWN INDICATION
  4. NPLATE [Suspect]
     Indication: THROMBOCYTOPENIA
     Dosage: 60 A?G, QWK
     Route: 058
     Dates: start: 20100709, end: 20101104
  5. FLUCONAZOLE [Concomitant]
     Indication: PRODUCT USED FOR UNKNOWN INDICATION
  6. FILGRASTIM [Concomitant]
     Indication: PRODUCT USED FOR UNKNOWN INDICATION

REACTIONS (2)
  - APLASTIC ANAEMIA [None]
  - HAEMATOLOGICAL MALIGNANCY [None]
